FAERS Safety Report 5747961-6 (Version None)
Quarter: 2008Q2

REPORT INFORMATION
  Report Type: 
  Country: None (occurrence: None)
  Receive Date: 20080523
  Receipt Date: 20080507
  Transmission Date: 20081010
  Serious: No
  Sender: FDA-Public Use
  Company Number: US-JNJFOC-20080501461

PATIENT
  Sex: Female
  Weight: 66.68 kg

DRUGS (8)
  1. INVEGA [Suspect]
     Indication: PSYCHOTIC DISORDER
     Route: 048
  2. PROVIGIL [Suspect]
     Route: 048
  3. PROVIGIL [Suspect]
     Route: 048
  4. PROVIGIL [Suspect]
     Indication: SOMNOLENCE
     Route: 048
  5. DEPLIN [Concomitant]
  6. ST. JOHN'S WORT [Concomitant]
  7. VITAMIN E [Concomitant]
  8. MULTI-VITAMIN [Concomitant]

REACTIONS (3)
  - DELUSION [None]
  - SOMNOLENCE [None]
  - TREMOR [None]
